FAERS Safety Report 5274732-X (Version None)
Quarter: 2007Q1

REPORT INFORMATION
  Report Type: 
  Country: None (occurrence: None)
  Receive Date: 20070320
  Receipt Date: 20070312
  Transmission Date: 20070707
  Serious: Yes (Other)
  Sender: FDA-Public Use
  Company Number: 2007304729

PATIENT
  Age: 6 Month
  Sex: Male
  Weight: 9.0719 kg

DRUGS (2)
  1. SUDACARE NIGHTTIME VAPOR-PLUG (MENTHOL, EUCALYPTUS OIL) [Suspect]
     Indication: NASAL CONGESTION
     Dosage: 1 PAD ONCE, INHALATION
     Route: 055
     Dates: start: 20070123, end: 20070123
  2. TYLENOL COLD (CHLORPHENAMINE MALEATE, DEXTROMETHORPHAN HYDROBROMIDE, P [Concomitant]

REACTIONS (8)
  - ABNORMAL BEHAVIOUR [None]
  - CRYING [None]
  - DISORIENTATION [None]
  - DRUG ADMINISTRATION ERROR [None]
  - FEELING ABNORMAL [None]
  - MANIA [None]
  - NERVOUSNESS [None]
  - TREMOR [None]
